FAERS Safety Report 20374161 (Version 2)
Quarter: 2022Q1

REPORT INFORMATION
  Report Type: Spontaneous
  Country: US (occurrence: US)
  Receive Date: 20220125
  Receipt Date: 20220210
  Transmission Date: 20220423
  Serious: Yes (Hospitalization, Other)
  Sender: FDA-Public Use
  Company Number: US-Axellia-003947

PATIENT
  Age: 20 Day
  Sex: Male

DRUGS (3)
  1. TOBRAMYCIN [Suspect]
     Active Substance: TOBRAMYCIN
     Indication: Endocarditis bacterial
     Dosage: INCREASED TO TOBRAMYCIN 4.5 MG/KG  IV EVERY 24 HOURS, 4.5 MG/KG IV EVERY 36 HOURS
     Route: 042
  2. VANCOMYCIN [Suspect]
     Active Substance: VANCOMYCIN
     Indication: Sepsis
  3. CEFEPIME [Suspect]
     Active Substance: CEFEPIME HYDROCHLORIDE
     Indication: Klebsiella infection
     Route: 042

REACTIONS (2)
  - Acute kidney injury [Recovering/Resolving]
  - Acidosis [Recovering/Resolving]
